FAERS Safety Report 6687402-8 (Version None)
Quarter: 2010Q2

REPORT INFORMATION
  Report Type: 
  Country: None (occurrence: None)
  Receive Date: 20100419
  Receipt Date: 20100406
  Transmission Date: 20101027
  Serious: Yes (Death)
  Sender: FDA-Public Use
  Company Number: US-ELI_LILLY_AND_COMPANY-US200909003491

PATIENT
  Sex: Female

DRUGS (1)
  1. ZYPREXA [Suspect]
     Indication: DEMENTIA ALZHEIMER'S TYPE
     Dosage: 5 MG, UNK
     Dates: start: 20080420

REACTIONS (5)
  - DEMENTIA [None]
  - DIET REFUSAL [None]
  - MALNUTRITION [None]
  - MULTI-ORGAN FAILURE [None]
  - OFF LABEL USE [None]
